FAERS Safety Report 25919900 (Version 1)
Quarter: 2025Q4

REPORT INFORMATION
  Report Type: Spontaneous
  Country: US (occurrence: None)
  Receive Date: 20251014
  Receipt Date: 20251014
  Transmission Date: 20260118
  Serious: No
  Sender: FDA-CTU
  Company Number: None

PATIENT

DRUGS (1)
  1. CHOLESTYRAMINE [Suspect]
     Active Substance: CHOLESTYRAMINE

REACTIONS (5)
  - Therapy change [None]
  - Gastrointestinal sounds abnormal [None]
  - Abdominal pain [None]
  - Diarrhoea [None]
  - Gastrooesophageal reflux disease [None]
